FAERS Safety Report 7282792-X (Version None)
Quarter: 2011Q1

REPORT INFORMATION
  Report Type: 
  Country: None (occurrence: None)
  Receive Date: 20110209
  Receipt Date: 20110128
  Transmission Date: 20110831
  Serious: Yes (Other)
  Sender: FDA-Public Use
  Company Number: US-BAYER-201018976NA

PATIENT
  Sex: Female

DRUGS (9)
  1. ASPIRIN [Concomitant]
     Indication: PREMEDICATION
  2. BETASERON [Suspect]
     Dosage: 4 MIU, QOD
     Route: 058
     Dates: start: 20100125, end: 20100201
  3. BETASERON [Suspect]
     Route: 058
     Dates: start: 20100423, end: 20100515
  4. BETASERON [Suspect]
     Dosage: 2 MIU, QOD
     Route: 058
     Dates: start: 20110112, end: 20110126
  5. BETASERON [Suspect]
     Indication: THORACIC OUTLET SYNDROME
     Route: 058
     Dates: start: 19960603, end: 20090101
  6. LIDODERM [Concomitant]
     Indication: THORACIC OUTLET SYNDROME
  7. BETASERON [Suspect]
     Dosage: UNK
     Route: 058
     Dates: start: 20100707, end: 20100811
  8. BETASERON [Suspect]
     Dosage: 8 MIU, QOD
     Route: 058
     Dates: start: 20100818, end: 20101207
  9. AMBIEN [Concomitant]
     Indication: INSOMNIA

REACTIONS (15)
  - INSOMNIA [None]
  - RIB FRACTURE [None]
  - HEPATIC ENZYME INCREASED [None]
  - NAUSEA [None]
  - FALL [None]
  - CONTUSION [None]
  - UPPER LIMB FRACTURE [None]
  - PAIN [None]
  - JOINT SPRAIN [None]
  - ACCIDENT [None]
  - CHILLS [None]
  - VOMITING [None]
  - TOOTH FRACTURE [None]
  - TOOTH INFECTION [None]
  - INFLUENZA LIKE ILLNESS [None]
